FAERS Safety Report 8974974 (Version 1)
Quarter: 2012Q4

REPORT INFORMATION
  Report Type: 
  Country: US (occurrence: US)
  Receive Date: 20121219
  Receipt Date: 20121219
  Transmission Date: 20130627
  Serious: Yes (Other)
  Sender: FDA-Public Use
  Company Number: US-ELI_LILLY_AND_COMPANY-US201201003827

PATIENT
  Sex: Male

DRUGS (5)
  1. CYMBALTA [Suspect]
     Indication: DEPRESSION
     Dosage: 30 mg, qd
     Dates: start: 20120103
  2. CYMBALTA [Suspect]
     Dosage: 60 mg, qd
     Route: 048
     Dates: start: 20110109
  3. CYMBALTA [Suspect]
     Dosage: 30 mg, unknown
  4. CYMBALTA [Suspect]
     Dosage: 30 mg, qod
  5. GABAPENTIN [Concomitant]
     Indication: PRODUCT USED FOR UNKNOWN INDICATION
     Dosage: 100 mg, qd

REACTIONS (7)
  - Skin ulcer haemorrhage [Not Recovered/Not Resolved]
  - Skin infection [Not Recovered/Not Resolved]
  - Dementia [Unknown]
  - Amnesia [Unknown]
  - Body temperature increased [Unknown]
  - Headache [Recovering/Resolving]
  - Diarrhoea [Unknown]
